APPROVED DRUG PRODUCT: COLESTIPOL HYDROCHLORIDE
Active Ingredient: COLESTIPOL HYDROCHLORIDE
Strength: 1GM
Dosage Form/Route: TABLET;ORAL
Application: A216517 | Product #001 | TE Code: AB
Applicant: ANI PHARMACEUTICALS INC
Approved: Mar 10, 2023 | RLD: No | RS: No | Type: RX